FAERS Safety Report 5669429-8 (Version None)
Quarter: 2008Q1

REPORT INFORMATION
  Report Type: 
  Country: None (occurrence: None)
  Receive Date: 20080317
  Receipt Date: 20080310
  Transmission Date: 20080703
  Serious: Yes (Other)
  Sender: FDA-Public Use
  Company Number: A0715870A

PATIENT
  Age: 49 Year
  Sex: Female

DRUGS (4)
  1. AVANDIA [Suspect]
     Route: 048
     Dates: end: 20080204
  2. LANTUS [Suspect]
     Dosage: 15UNIT AT NIGHT
     Route: 058
     Dates: start: 20030101, end: 20080204
  3. NOVOLOG [Suspect]
     Dates: end: 20080204
  4. METFORMIN [Suspect]
     Route: 048
     Dates: end: 20080204

REACTIONS (5)
  - BLOOD GLUCOSE INCREASED [None]
  - DIZZINESS [None]
  - LOSS OF CONSCIOUSNESS [None]
  - SYNCOPE [None]
  - VERTIGO [None]
